FAERS Safety Report 9099130 (Version 1)
Quarter: 2013Q1

REPORT INFORMATION
  Report Type: Spontaneous
  Country: GB (occurrence: GB)
  Receive Date: 20130213
  Receipt Date: 20130213
  Transmission Date: 20140127
  Serious: Yes (Disabling)
  Sender: FDA-Public Use
  Company Number: GB-PFIZER INC-2013054629

PATIENT
  Age: 85 Year
  Sex: Female

DRUGS (17)
  1. ATENOLOL [Suspect]
     Dosage: UNK
     Dates: start: 20130109
  2. OMEPRAZOLE [Concomitant]
     Dosage: UNK
     Route: 048
     Dates: start: 20120925
  3. MONTELUKAST [Concomitant]
     Dosage: UNK
     Route: 048
     Dates: start: 20120925
  4. ASPIRIN [Concomitant]
     Dosage: UNK
     Route: 048
     Dates: start: 20120925
  5. ISOSORBIDE MONONITRATE [Concomitant]
     Dosage: UNK
     Route: 065
     Dates: start: 20120925
  6. AQUEOUS CREAM [Concomitant]
     Dosage: UNK
     Route: 065
     Dates: start: 20121210, end: 20130107
  7. DILTIAZEM [Concomitant]
     Dosage: UNK
     Route: 065
     Dates: start: 20120925
  8. ERYTHROMYCIN [Concomitant]
     Dosage: UNK
     Route: 065
     Dates: start: 20120109, end: 20130116
  9. GLANDOSANE [Concomitant]
     Dosage: UNK
     Route: 065
     Dates: start: 20121113
  10. IBUPROFEN [Concomitant]
     Dosage: UNK
     Route: 065
     Dates: start: 20121210
  11. LEVOTHYROXINE [Concomitant]
     Dosage: UNK
     Route: 065
     Dates: start: 20120821, end: 20121129
  12. LEVOTHYROXINE [Concomitant]
     Dosage: UNK
     Route: 065
     Dates: start: 20121210
  13. SERETIDE [Concomitant]
     Dosage: UNK
     Route: 065
     Dates: start: 20121113, end: 20121114
  14. SERETIDE [Concomitant]
     Dosage: UNK
     Route: 065
     Dates: start: 20121210, end: 20121211
  15. TIOTROPIUM [Concomitant]
     Dosage: UNK
     Route: 065
     Dates: start: 20120925
  16. TRAMADOL [Concomitant]
     Dosage: UNK
     Route: 065
     Dates: start: 20120925
  17. VENTOLIN [Concomitant]
     Dosage: UNK
     Route: 065
     Dates: start: 20121107, end: 20121205

REACTIONS (1)
  - Agitation [Recovered/Resolved]
